FAERS Safety Report 4617256-2 (Version None)
Quarter: 2005Q1

REPORT INFORMATION
  Report Type: 
  Country: None (occurrence: None)
  Receive Date: 20050323
  Receipt Date: 20050302
  Transmission Date: 20050727
  Serious: Yes (Hospitalization, Other)
  Sender: FDA-Public Use
  Company Number: MY-MERCK-0503MYS00013

PATIENT
  Age: 49 Year
  Sex: Male

DRUGS (8)
  1. DECADRON [Suspect]
     Indication: PROPHYLAXIS OF NAUSEA AND VOMITING
     Route: 048
  2. ONDANSETRON [Concomitant]
     Indication: PROPHYLAXIS OF NAUSEA AND VOMITING
     Route: 048
  3. METOCLOPRAMIDE [Concomitant]
     Indication: PROPHYLAXIS OF NAUSEA AND VOMITING
     Route: 048
  4. PYRIDOSTIGMINE BROMIDE [Concomitant]
     Indication: MYASTHENIA GRAVIS
     Route: 048
  5. DOXORUBICIN HCL [Suspect]
     Indication: THYMOMA MALIGNANT
     Route: 042
  6. CISPLATIN [Suspect]
     Indication: THYMOMA MALIGNANT
     Route: 048
  7. ETOPOSIDE [Suspect]
     Indication: THYMOMA MALIGNANT
     Route: 048
  8. CEFTRIAXONE SODIUM [Concomitant]
     Indication: STAPHYLOCOCCAL INFECTION
     Route: 042

REACTIONS (3)
  - MYASTHENIA GRAVIS CRISIS [None]
  - RADIATION PNEUMONITIS [None]
  - RESPIRATORY FAILURE [None]
